FAERS Safety Report 4627543-X (Version None)
Quarter: 2005Q2

REPORT INFORMATION
  Report Type: 
  Country: None (occurrence: None)
  Receive Date: 20050405
  Receipt Date: 20050321
  Transmission Date: 20051028
  Serious: Yes (Other)
  Sender: FDA-Public Use
  Company Number: 2005047578

PATIENT
  Age: 82 Year
  Sex: Female
  Weight: 65.318 kg

DRUGS (8)
  1. TOLTERODINE TARTRATE [Suspect]
     Indication: HYPERTONIC BLADDER
     Dosage: 4 MG (4 MG, 1 IN 1 D), ORAL
     Route: 048
     Dates: start: 20050314
  2. CONJUGATED ESTROGENS [Concomitant]
  3. VERAPAMIL [Concomitant]
  4. DYAZIDE [Concomitant]
  5. POTASSIUM ACETATE [Concomitant]
  6. TOCOPHEROL (TOCOPHEROL) [Concomitant]
  7. MULTIVITAMINS (ASCORBIC ACID, ERGOCALCIFEROL, FOLIC ACID, NICOTINAMIDE [Concomitant]
  8. ASPIRIN [Concomitant]

REACTIONS (4)
  - DRY MOUTH [None]
  - HYPERSENSITIVITY [None]
  - REFUSAL OF TREATMENT BY PATIENT [None]
  - SWOLLEN TONGUE [None]
